FAERS Safety Report 4317475-9 (Version None)
Quarter: 2004Q1

REPORT INFORMATION
  Report Type: 
  Country: None (occurrence: None)
  Receive Date: 20040312
  Receipt Date: 20040303
  Transmission Date: 20041129
  Serious: Yes (Hospitalization, Other)
  Sender: FDA-Public Use
  Company Number: 2005-05-0980

PATIENT
  Age: 36 Year
  Sex: Male

DRUGS (5)
  1. INTERFERON ALFA INJECTABLE [Suspect]
     Indication: HEPATITIS C
     Dosage: 3 MU TIW SUBCUTANEOUS
     Route: 058
     Dates: start: 19991101, end: 20000425
  2. REBETOL [Suspect]
     Indication: HEPATITIS C
     Dosage: 1200 MG QD ORAL
     Route: 048
     Dates: start: 19991101, end: 20000425
  3. METHADONE [Concomitant]
  4. IXEL (MILNACIPRAN) [Concomitant]
  5. PROZAC [Concomitant]

REACTIONS (15)
  - AGGRESSION [None]
  - AGITATION [None]
  - ANXIETY [None]
  - ASTHENIA [None]
  - CONFUSIONAL STATE [None]
  - CRYING [None]
  - DISTURBANCE IN ATTENTION [None]
  - DYSURIA [None]
  - MAJOR DEPRESSION [None]
  - NARCISSISTIC PERSONALITY DISORDER [None]
  - PERSONALITY CHANGE [None]
  - PROSTATITIS [None]
  - PSYCHOMOTOR RETARDATION [None]
  - SLEEP DISORDER [None]
  - WEIGHT DECREASED [None]
